FAERS Safety Report 12757213 (Version 1)
Quarter: 2016Q3

REPORT INFORMATION
  Report Type: Spontaneous
  Country: CN (occurrence: CN)
  Receive Date: 20160919
  Receipt Date: 20160919
  Transmission Date: 20161109
  Serious: Yes (Life-Threatening)
  Sender: FDA-Public Use
  Company Number: CN-ROCHE-1831424

PATIENT
  Age: 4 Month
  Sex: Male

DRUGS (2)
  1. MUCOSOLVAN [Concomitant]
     Active Substance: AMBROXOL HYDROCHLORIDE
     Indication: PNEUMONIA
     Route: 065
     Dates: start: 20160915, end: 20160915
  2. ROCEPHIN [Suspect]
     Active Substance: CEFTRIAXONE SODIUM
     Indication: PNEUMONIA
     Route: 041
     Dates: start: 20160915, end: 20160915

REACTIONS (3)
  - Dry skin [Recovering/Resolving]
  - Chills [Recovering/Resolving]
  - Listless [Recovering/Resolving]

NARRATIVE: CASE EVENT DATE: 20160915
